FAERS Safety Report 6136575-4 (Version None)
Quarter: 2009Q1

REPORT INFORMATION
  Report Type: 
  Country: None (occurrence: None)
  Receive Date: 20090325
  Receipt Date: 20090318
  Transmission Date: 20090719
  Serious: Yes (Hospitalization)
  Sender: FDA-Public Use
  Company Number: 20096249

PATIENT
  Sex: Male

DRUGS (1)
  1. LIORESAL [Suspect]
     Indication: MUSCLE SPASTICITY
     Dosage: 50-29.9 MCG, DAILY, INTRATHECAL - SE

REACTIONS (21)
  - AUTONOMIC DYSREFLEXIA [None]
  - BLISTER [None]
  - DRUG INEFFECTIVE [None]
  - FOOD ALLERGY [None]
  - GASTRIC DISORDER [None]
  - HEADACHE [None]
  - HEART RATE DECREASED [None]
  - HYPOTONIA [None]
  - INTESTINAL FUNCTIONAL DISORDER [None]
  - LIP SWELLING [None]
  - MUSCLE SPASMS [None]
  - OVERDOSE [None]
  - PRURITUS [None]
  - PYREXIA [None]
  - RASH [None]
  - SALIVARY HYPERSECRETION [None]
  - SWOLLEN TONGUE [None]
  - URTICARIA [None]
  - VISION BLURRED [None]
  - VOMITING [None]
  - WEIGHT DECREASED [None]
